FAERS Safety Report 7035978-3 (Version None)
Quarter: 2010Q4

REPORT INFORMATION
  Report Type: 
  Country: None (occurrence: None)
  Receive Date: 20101008
  Receipt Date: 20100929
  Transmission Date: 20110411
  Serious: Yes (Other)
  Sender: FDA-Public Use
  Company Number: GXKR2010NO11088

PATIENT
  Sex: Male

DRUGS (6)
  1. SIMVASTATIN (NGX) [Suspect]
     Route: 048
     Dates: end: 20091001
  2. ANTABUSE [Suspect]
     Indication: ALCOHOL ABUSE
     Dosage: 200 MG DAILY
     Route: 048
     Dates: start: 20080101, end: 20091007
  3. ZESTRIL [Concomitant]
     Indication: HYPERTENSION
     Route: 048
     Dates: end: 20100201
  4. PROSCAR [Concomitant]
     Indication: DYSURIA
     Route: 048
  5. LEVOTHYROXINE SODIUM [Concomitant]
     Indication: HYPOTHYROIDISM
     Route: 048
  6. ALBYL-E [Concomitant]
     Route: 048

REACTIONS (1)
  - COGNITIVE DISORDER [None]
